FAERS Safety Report 7543604-X (Version None)
Quarter: 2011Q2

REPORT INFORMATION
  Report Type: 
  Country: None (occurrence: None)
  Receive Date: 20110613
  Receipt Date: 20021111
  Transmission Date: 20111010
  Serious: Yes (Other)
  Sender: FDA-Public Use
  Company Number: PHFR2002GB03348

PATIENT
  Sex: Female

DRUGS (1)
  1. CLOZAPINE [Suspect]
     Indication: SCHIZOPHRENIA
     Dosage: 350 MG/DAY
     Route: 048
     Dates: start: 19980112

REACTIONS (7)
  - DEMENTIA [None]
  - DIZZINESS [None]
  - FALL [None]
  - RENAL FAILURE [None]
  - JOINT SWELLING [None]
  - CARDIAC FAILURE [None]
  - URINARY TRACT INFECTION [None]
